FAERS Safety Report 10142023 (Version 2)
Quarter: 2014Q2

REPORT INFORMATION
  Report Type: Report from Study
  Country: HT (occurrence: HT)
  Receive Date: 20140429
  Receipt Date: 20140523
  Transmission Date: 20141212
  Serious: Yes (Death, Other)
  Sender: FDA-Public Use
  Company Number: HT-BRISTOL-MYERS SQUIBB COMPANY-20665337

PATIENT
  Age: 43 Year
  Sex: Male

DRUGS (3)
  1. STOCRIN CAPS [Suspect]
     Indication: HIV INFECTION
     Dosage: 25FEB2014?QPM
     Route: 048
     Dates: start: 20140213, end: 20140225
  2. RIFAMPICIN + ISONIAZID + PYRAZINAMIDE + ETHAMBUTOL [Suspect]
     Indication: TUBERCULOSIS
     Dosage: QAM?CAPS?17MAR14 TABS 1800 MG
     Route: 048
     Dates: start: 20140218, end: 20140225
  3. BACTRIM [Concomitant]
     Dates: end: 20140225

REACTIONS (2)
  - Diarrhoea [Fatal]
  - Anaemia [Fatal]
